FAERS Safety Report 23189248 (Version 1)
Quarter: 2023Q4

REPORT INFORMATION
  Report Type: Spontaneous
  Country: US (occurrence: US)
  Receive Date: 20231115
  Receipt Date: 20231115
  Transmission Date: 20240109
  Serious: No
  Sender: FDA-Public Use
  Company Number: US-drreddys-SPO/USA/23/0180019

PATIENT
  Age: 42 Year
  Sex: Female

DRUGS (2)
  1. ZENATANE [Suspect]
     Active Substance: ISOTRETINOIN
     Indication: Product used for unknown indication
     Dosage: RMA ISSUE DATE: 17 FEBRUARY 2023 01:29:59 PM, 20 JUNE 2023 04:48:57 PM, 31 JULY 2023 03:08:05 PM, 07
  2. ZENATANE [Suspect]
     Active Substance: ISOTRETINOIN
     Dosage: RMA ISSUE DATE: 31 MARCH 2023 11:21:54 AM

REACTIONS (2)
  - Lip dry [Unknown]
  - Myalgia [Unknown]
